FAERS Safety Report 18520836 (Version 1)
Quarter: 2020Q4

REPORT INFORMATION
  Report Type: Spontaneous
  Country: FR (occurrence: FR)
  Receive Date: 20201119
  Receipt Date: 20201119
  Transmission Date: 20210114
  Serious: Yes (Hospitalization)
  Sender: FDA-Public Use
  Company Number: FR-AUROBINDO-AUR-APL-2020-056382

PATIENT
  Age: 53 Year
  Sex: Male
  Weight: 65 kg

DRUGS (2)
  1. CIPROFLOXACIN HYDROCHLORIDE ARROW FILM-COATED TABLET 500MG [Suspect]
     Active Substance: CIPROFLOXACIN HYDROCHLORIDE
     Indication: SOFT TISSUE FLAP OPERATION
     Dosage: 1500 MILLIGRAM, ONCE A DAY
     Route: 048
     Dates: start: 20201020, end: 20201027
  2. PIPERACILIN/TAZOBAKTAM MYLAN [Suspect]
     Active Substance: PIPERACILLIN SODIUM\TAZOBACTAM SODIUM
     Indication: SOFT TISSUE FLAP OPERATION
     Dosage: 12 GRAM, ONCE A DAY
     Route: 041
     Dates: start: 20201016, end: 20201027

REACTIONS (1)
  - Rash maculo-papular [Recovering/Resolving]

NARRATIVE: CASE EVENT DATE: 20201023
